FAERS Safety Report 21629138 (Version 1)
Quarter: 2022Q4

REPORT INFORMATION
  Report Type: Spontaneous
  Country: US (occurrence: None)
  Receive Date: 20221121
  Receipt Date: 20221121
  Transmission Date: 20230112
  Serious: No
  Sender: FDA-Public Use
  Company Number: None

PATIENT
  Age: 69 Year
  Sex: Female
  Weight: 88.0 kg

DRUGS (15)
  1. CYCLOPHOSPHAMIDE [Suspect]
     Active Substance: CYCLOPHOSPHAMIDE
     Indication: Ovarian cancer
     Dosage: FREQUENCY : DAILY;?
     Route: 048
  2. AVASTIN [Concomitant]
     Active Substance: BEVACIZUMAB
  3. CBD [Concomitant]
  4. DILTIAZEM [Concomitant]
     Active Substance: DILTIAZEM
  5. ELIQUIS [Concomitant]
     Active Substance: APIXABAN
  6. NORCO [Concomitant]
     Active Substance: ACETAMINOPHEN\HYDROCODONE BITARTRATE
  7. KLOR-CON [Concomitant]
     Active Substance: POTASSIUM CHLORIDE
  8. LIDOCAINE [Concomitant]
     Active Substance: LIDOCAINE
  9. LOSARTAN [Concomitant]
     Active Substance: LOSARTAN
  10. MUPIROCIN [Concomitant]
     Active Substance: MUPIROCIN
  11. ONDANSETRON [Concomitant]
     Active Substance: ONDANSETRON
  12. PANTOPRAZOLE [Concomitant]
     Active Substance: PANTOPRAZOLE
  13. SPIRONOLACTONE [Concomitant]
     Active Substance: SPIRONOLACTONE
  14. STERILEPRESERVED SALINE SOLUTION [Concomitant]
  15. TYLENOL [Concomitant]
     Active Substance: ACETAMINOPHEN

REACTIONS (1)
  - Disease progression [None]
